FAERS Safety Report 13811383 (Version 1)
Quarter: 2017Q3

REPORT INFORMATION
  Report Type: Spontaneous
  Country: US (occurrence: US)
  Receive Date: 20170728
  Receipt Date: 20170728
  Transmission Date: 20171127
  Serious: No
  Sender: FDA-Public Use
  Company Number: US-ROCHE-802156

PATIENT
  Sex: Female

DRUGS (1)
  1. BONIVA [Suspect]
     Active Substance: IBANDRONATE SODIUM
     Indication: OSTEOPOROSIS
     Dosage: FREQUENCY: MONTHLY
     Route: 050

REACTIONS (5)
  - Mobility decreased [Unknown]
  - Gait disturbance [Unknown]
  - Bone pain [Unknown]
  - Arthralgia [Unknown]
  - Joint range of motion decreased [Unknown]
